FAERS Safety Report 5838470-4 (Version None)
Quarter: 2008Q3

REPORT INFORMATION
  Report Type: 
  Country: None (occurrence: None)
  Receive Date: 20080806
  Receipt Date: 20080728
  Transmission Date: 20090109
  Serious: Yes (Disabling)
  Sender: FDA-Public Use
  Company Number: 163-21880-08071640

PATIENT
  Age: 73 Year
  Sex: Female

DRUGS (1)
  1. REVLIMID [Suspect]
     Indication: MULTIPLE MYELOMA
     Dosage: 25 MG, DAILY, ORAL
     Route: 048
     Dates: start: 20080701, end: 20080701

REACTIONS (5)
  - ABASIA [None]
  - ASTHENIA [None]
  - FAECAL VOLUME INCREASED [None]
  - NAUSEA [None]
  - WEIGHT DECREASED [None]
